FAERS Safety Report 10067388 (Version 1)
Quarter: 2014Q2

REPORT INFORMATION
  Report Type: Spontaneous
  Country: IT (occurrence: None)
  Receive Date: 20140407
  Receipt Date: 20140407
  Transmission Date: 20141212
  Serious: Yes (Other)
  Sender: FDA-Public Use
  Company Number: FK201401172

PATIENT
  Age: 74 Year
  Sex: Male

DRUGS (2)
  1. GEMCITABINE [Suspect]
     Indication: T-CELL LYMPHOMA
     Dosage: ONE CYCLE
  2. OXALIPLATIN [Suspect]
     Indication: T-CELL LYMPHOMA
     Dosage: ONE CYCLE

REACTIONS (2)
  - Toxicity to various agents [None]
  - Haematotoxicity [None]
